FAERS Safety Report 13844055 (Version 1)
Quarter: 2017Q3

REPORT INFORMATION
  Report Type: Spontaneous
  Country: US (occurrence: US)
  Receive Date: 20170808
  Receipt Date: 20170808
  Transmission Date: 20171127
  Serious: Yes (Other)
  Sender: FDA-Public Use
  Company Number: US-SUN PHARMACEUTICAL INDUSTRIES LTD-2017US-146518

PATIENT
  Sex: Female

DRUGS (2)
  1. NAPROXEN. [Suspect]
     Active Substance: NAPROXEN
     Indication: DYSMENORRHOEA
     Dosage: DURING THE WEEK OF MENSES
     Route: 065
  2. IBUPROFEN. [Suspect]
     Active Substance: IBUPROFEN
     Indication: DYSMENORRHOEA
     Dosage: DURING THE WEEK OF MENSES
     Route: 065

REACTIONS (1)
  - Oral mucosal eruption [Recovered/Resolved]
